FAERS Safety Report 25761133 (Version 1)
Quarter: 2025Q3

REPORT INFORMATION
  Report Type: Spontaneous
  Country: EU (occurrence: EU)
  Receive Date: 20250904
  Receipt Date: 20250904
  Transmission Date: 20251021
  Serious: Yes (Hospitalization)
  Sender: ALEXION PHARMACEUTICALS
  Company Number: None

PATIENT
  Age: 72 Year
  Sex: Male

DRUGS (8)
  1. TICAGRELOR [Interacting]
     Active Substance: TICAGRELOR
     Indication: Acute coronary syndrome
     Dosage: 1 CP CADA 12 HORAS
     Dates: start: 20250120
  2. EZETIMIBE\ROSUVASTATIN ZINC [Interacting]
     Active Substance: EZETIMIBE\ROSUVASTATIN ZINC
     Indication: Hypercholesterolaemia
     Dosage: 1 CP CADA 24 HORAS
     Dates: start: 20250312, end: 20250419
  3. ICOSAPENT ETHYL [Concomitant]
     Active Substance: ICOSAPENT ETHYL
     Indication: Acute coronary syndrome
     Dosage: 2 CP CADA 12 HORAS
     Dates: start: 20250120, end: 20250419
  4. ASPIRIN [Concomitant]
     Active Substance: ASPIRIN
     Indication: Acute coronary syndrome
     Dosage: 1 CP CADA 24 HORAS
     Dates: start: 20250120
  5. Rabidux [Concomitant]
     Indication: Acute coronary syndrome
     Dosage: 1 CP CADA 24 HORAS
     Dates: start: 20250120
  6. OMEPRAZOLE [Concomitant]
     Active Substance: OMEPRAZOLE
     Dosage: 1 CP CADA 24 HORA
     Dates: start: 20220222
  7. TRESIBA [Concomitant]
     Active Substance: INSULIN DEGLUDEC
     Indication: Insulin-requiring type 2 diabetes mellitus
  8. JARDIANCE [Concomitant]
     Active Substance: EMPAGLIFLOZIN
     Dosage: 1 CP CADA 24 HORAS
     Dates: start: 20241106

REACTIONS (2)
  - Rhabdomyolysis [Recovered/Resolved]
  - Acute kidney injury [Unknown]

NARRATIVE: CASE EVENT DATE: 20250401
